FAERS Safety Report 12099121 (Version 1)
Quarter: 2016Q1

REPORT INFORMATION
  Report Type: Spontaneous
  Country: US (occurrence: US)
  Receive Date: 20160222
  Receipt Date: 20160222
  Transmission Date: 20160526
  Serious: Yes (Hospitalization)
  Sender: FDA-Public Use
  Company Number: US-ELI_LILLY_AND_COMPANY-US201602004110

PATIENT
  Sex: Female

DRUGS (2)
  1. HUMALOG [Suspect]
     Active Substance: INSULIN LISPRO
     Indication: PRODUCT USED FOR UNKNOWN INDICATION
     Dosage: 35 U, TID
     Route: 065
  2. HUMALOG [Suspect]
     Active Substance: INSULIN LISPRO
     Dosage: UNK, PRN
     Route: 065

REACTIONS (9)
  - Infection [Unknown]
  - Blood glucose decreased [Unknown]
  - Bronchitis [Unknown]
  - Pruritus [Unknown]
  - Influenza [Unknown]
  - Pain [Unknown]
  - Muscular weakness [Unknown]
  - Nausea [Unknown]
  - Microlithiasis [Unknown]
